FAERS Safety Report 14278290 (Version 2)
Quarter: 2018Q4

REPORT INFORMATION
  Report Type: Spontaneous
  Country: US (occurrence: US)
  Receive Date: 20171211
  Receipt Date: 20181211
  Transmission Date: 20190204
  Serious: Yes (Hospitalization, Other)
  Sender: FDA-Public Use
  Company Number: US-OTSUKA-2017_013017

PATIENT
  Age: 49 Year

DRUGS (2)
  1. ABILIFY [Suspect]
     Active Substance: ARIPIPRAZOLE
     Indication: MAJOR DEPRESSION
     Dosage: 5 MG, UNK
     Route: 065
     Dates: start: 201303, end: 201406
  2. ABILIFY [Suspect]
     Active Substance: ARIPIPRAZOLE
     Indication: PANIC ATTACK
     Dosage: UNK
     Route: 065

REACTIONS (35)
  - Condition aggravated [Recovered/Resolved]
  - Mean cell haemoglobin increased [Unknown]
  - Blood sodium decreased [Unknown]
  - Insomnia [Unknown]
  - Suicide attempt [Unknown]
  - Suicidal ideation [Unknown]
  - Blood chloride increased [Unknown]
  - Depressed mood [Unknown]
  - Back pain [Unknown]
  - Depression [Unknown]
  - Divorced [Unknown]
  - Alanine aminotransferase decreased [Unknown]
  - Glomerular filtration rate increased [Unknown]
  - Impulsive behaviour [Unknown]
  - Weight decreased [Unknown]
  - Eye swelling [Unknown]
  - Haemoglobin increased [Unknown]
  - Abdominal pain [Unknown]
  - Attention deficit/hyperactivity disorder [Unknown]
  - Blood glucose increased [Unknown]
  - Crying [Unknown]
  - Stress [Unknown]
  - Migraine [Unknown]
  - Obsessive-compulsive disorder [Unknown]
  - Economic problem [Unknown]
  - Gambling disorder [Recovered/Resolved]
  - Acute sinusitis [Unknown]
  - Blood creatinine decreased [Unknown]
  - Tension headache [Unknown]
  - Bronchitis [Unknown]
  - Myalgia [Unknown]
  - Pain [Unknown]
  - Anxiety [Unknown]
  - Fatigue [Unknown]
  - Homeless [Unknown]

NARRATIVE: CASE EVENT DATE: 20140309
